FAERS Safety Report 18273761 (Version 3)
Quarter: 2021Q3

REPORT INFORMATION
  Report Type: Spontaneous
  Country: DE (occurrence: DE)
  Receive Date: 20200916
  Receipt Date: 20210930
  Transmission Date: 20211014
  Serious: Yes (Other)
  Sender: FDA-Public Use
  Company Number: DE-MYLANLABS-2020M1078176

PATIENT
  Sex: Male

DRUGS (5)
  1. CANDECOR COMP [Concomitant]
     Active Substance: CANDESARTAN CILEXETIL\HYDROCHLOROTHIAZIDE
     Indication: HYPERTENSION
     Dosage: 1 DOSAGE FORM, QD
  2. PANTOPRAZOLE [Concomitant]
     Active Substance: PANTOPRAZOLE
     Indication: DYSPEPSIA
     Dosage: 20 MILLIGRAM, QD
  3. METHOTREXATE. [Suspect]
     Active Substance: METHOTREXATE
     Indication: RHEUMATOID ARTHRITIS
     Dosage: 15 MILLIGRAM (TREATMENT SINCE MORE THAN 10 YEARS)
     Route: 058
     Dates: start: 202011
  4. FOLIC ACID. [Concomitant]
     Active Substance: FOLIC ACID
     Dosage: 10 MILLIGRAM (THE DAY AFTER MTX INTAKE)
  5. PREDNISOLONE. [Concomitant]
     Active Substance: PREDNISOLONE
     Dosage: HIGHER DOSE AS NECESSARY (DURING DETERIORATION OF RA)

REACTIONS (11)
  - Polyneuropathy [Not Recovered/Not Resolved]
  - Alopecia [Recovered/Resolved]
  - Myalgia [Recovered/Resolved]
  - Photosensitivity reaction [Not Recovered/Not Resolved]
  - Conjunctivitis [Recovered/Resolved]
  - Peripheral swelling [Not Recovered/Not Resolved]
  - Loss of libido [Not Recovered/Not Resolved]
  - Erectile dysfunction [Not Recovered/Not Resolved]
  - Joint swelling [Not Recovered/Not Resolved]
  - Productive cough [Recovered/Resolved]
  - Gynaecomastia [Not Recovered/Not Resolved]
